FAERS Safety Report 8061637-4 (Version None)
Quarter: 2012Q1

REPORT INFORMATION
  Report Type: 
  Country: None (occurrence: None)
  Receive Date: 20120123
  Receipt Date: 20120112
  Transmission Date: 20120608
  Serious: Yes (Other)
  Sender: FDA-Public Use
  Company Number: JP-BRISTOL-MYERS SQUIBB COMPANY-16350563

PATIENT
  Age: 68 Year
  Sex: Female

DRUGS (9)
  1. WARFARIN SODIUM [Concomitant]
  2. BARACLUDE [Suspect]
  3. NORVASC [Concomitant]
  4. AMOBAN [Concomitant]
  5. ALDACTONE [Concomitant]
  6. NESINA [Concomitant]
  7. TACROLIMUS [Concomitant]
  8. LASIX [Concomitant]
  9. PURSENNID [Concomitant]

REACTIONS (2)
  - RENAL FAILURE [None]
  - WHITE BLOOD CELL COUNT DECREASED [None]
